FAERS Safety Report 9229460 (Version 1)
Quarter: 2013Q2

REPORT INFORMATION
  Report Type: Spontaneous
  Country: US (occurrence: US)
  Receive Date: 20130412
  Receipt Date: 20130412
  Transmission Date: 20140414
  Serious: No
  Sender: FDA-Public Use
  Company Number: US-ASTELLAS-2012US012898

PATIENT
  Sex: Female
  Weight: 77 kg

DRUGS (6)
  1. PROGRAF [Suspect]
     Indication: LIVER DISORDER
     Dosage: 1.5 MG, UID/QD
     Route: 048
  2. PROGRAF [Suspect]
     Indication: AUTOIMMUNE HEPATITIS
     Dosage: 1.5 MG, BID
     Route: 048
     Dates: start: 201112
  3. PREDNISONE [Concomitant]
     Indication: LIVER DISORDER
     Dosage: 5 MG, UID/QD
     Route: 065
     Dates: start: 2010
  4. PREDNISONE [Concomitant]
     Dosage: 10 MG, UID/QD
     Route: 065
     Dates: start: 2010
  5. PREDNISONE [Concomitant]
     Dosage: 40 MG, UID/QD
     Route: 065
     Dates: start: 201112
  6. CELLCEPT                           /01275102/ [Concomitant]
     Indication: LIVER DISORDER
     Dosage: 1 G, BID
     Route: 065
     Dates: start: 2010

REACTIONS (1)
  - Off label use [Unknown]
